FAERS Safety Report 4610499-3 (Version None)
Quarter: 2005Q1

REPORT INFORMATION
  Report Type: 
  Country: None (occurrence: None)
  Receive Date: 20050314
  Receipt Date: 20050303
  Transmission Date: 20050727
  Serious: Yes (Hospitalization, Other)
  Sender: FDA-Public Use
  Company Number: 2004-08-0872

PATIENT
  Age: 34 Year
  Sex: Male

DRUGS (3)
  1. PEG-INTRON [Suspect]
     Indication: HEPATITIS C
     Dosage: SUBUCUTANEOUS
     Route: 058
     Dates: start: 20040317
  2. REBETOL [Suspect]
     Indication: HEPATITIS C
     Dosage: ORAL
     Route: 048
     Dates: start: 20040317
  3. VICODIN TABLETS 5-500MG [Concomitant]

REACTIONS (3)
  - CONDITION AGGRAVATED [None]
  - GASTRITIS [None]
  - HYPERTRIGLYCERIDAEMIA [None]
